FAERS Safety Report 6242029-7 (Version None)
Quarter: 2009Q2

REPORT INFORMATION
  Report Type: 
  Country: None (occurrence: None)
  Receive Date: 20090623
  Receipt Date: 20090610
  Transmission Date: 20091009
  Serious: Yes (Other)
  Sender: FDA-Public Use
  Company Number: PHHY2009FR13930

PATIENT
  Sex: Male

DRUGS (6)
  1. FEMARA [Suspect]
     Dosage: 2.5 MG/DAY
     Dates: start: 20090108
  2. TAHOR [Concomitant]
  3. EZETROL [Concomitant]
  4. ZANIDIP [Concomitant]
  5. PLAVIX [Concomitant]
  6. KARDEGIC [Concomitant]

REACTIONS (1)
  - LIBIDO DECREASED [None]
